FAERS Safety Report 6766803-3 (Version None)
Quarter: 2010Q2

REPORT INFORMATION
  Report Type: 
  Country: None (occurrence: None)
  Receive Date: 20100611
  Receipt Date: 20100604
  Transmission Date: 20101027
  Serious: Yes (Death)
  Sender: FDA-Public Use
  Company Number: PHHY2010NL36782

PATIENT
  Sex: Male

DRUGS (2)
  1. ZOMETA [Suspect]
     Dosage: UNK, 4 MG/5 ML
     Dates: end: 20100421
  2. ZOMETA [Suspect]
     Dosage: UNK, 4 MG/5 ML
     Dates: start: 20100421

REACTIONS (1)
  - DEATH [None]
